FAERS Safety Report 4977907-X (Version None)
Quarter: 2006Q2

REPORT INFORMATION
  Report Type: 
  Country: None (occurrence: None)
  Receive Date: 20060417
  Receipt Date: 20060403
  Transmission Date: 20061013
  Serious: Yes (Other)
  Sender: FDA-Public Use
  Company Number: 2006046550

PATIENT
  Age: 35 Year
  Sex: Male

DRUGS (4)
  1. GEODON [Suspect]
     Indication: THINKING ABNORMAL
     Dates: start: 20060323, end: 20060325
  2. ATIVAN [Concomitant]
  3. CYMBALTA [Concomitant]
  4. SEROQUEL [Concomitant]

REACTIONS (1)
  - PHARYNGEAL OEDEMA [None]
